FAERS Safety Report 8583018-7 (Version None)
Quarter: 2012Q3

REPORT INFORMATION
  Report Type: 
  Country: None (occurrence: None)
  Receive Date: 20120809
  Receipt Date: 20120802
  Transmission Date: 20120928
  Serious: Yes (Other)
  Sender: FDA-Public Use
  Company Number: FR-ELI_LILLY_AND_COMPANY-FR201208000655

PATIENT
  Sex: Female

DRUGS (3)
  1. ALIMTA [Suspect]
     Dosage: 800 MG, 2ND LINE TREATMENT (DAY 1 CYCLE 1)
     Route: 042
     Dates: start: 20120530, end: 20120530
  2. ALIMTA [Suspect]
     Indication: LUNG ADENOCARCINOMA STAGE IV
     Dosage: FIRST LINE TREATMENT
     Route: 042
  3. CISPLATIN [Concomitant]
     Indication: LUNG ADENOCARCINOMA STAGE IV
     Dosage: 1ST LINE TREATMENT

REACTIONS (1)
  - CYTOLYTIC HEPATITIS [None]
